FAERS Safety Report 21449328 (Version 1)
Quarter: 2022Q4

REPORT INFORMATION
  Report Type: Spontaneous
  Country: FR (occurrence: FR)
  Receive Date: 20221013
  Receipt Date: 20221013
  Transmission Date: 20230112
  Serious: Yes (Hospitalization)
  Sender: FDA-Public Use
  Company Number: FR-AFSSAPS-PB20222315

PATIENT
  Age: 17 Year
  Sex: Female

DRUGS (2)
  1. RAMIPRIL [Suspect]
     Active Substance: RAMIPRIL
     Indication: Product used for unknown indication
     Dosage: 5 MILLIGRAM (20 ? 28 CP DE RAMIPRIL 5 MG (2 PLAQUETTES)/ 20 TO 28 TABLETS OF RAMIPRIL 5 MG (2 PLATEL
     Route: 048
     Dates: start: 20160208
  2. XANAX [Suspect]
     Active Substance: ALPRAZOLAM
     Indication: Product used for unknown indication
     Dosage: UNK (8 TABS IN 1 TAKE/ 8 CP EN 1 PRISE )
     Route: 048
     Dates: start: 20160208

REACTIONS (3)
  - Somnolence [Recovered/Resolved]
  - Hypotension [Recovered/Resolved]
  - Intentional overdose [Recovered/Resolved]

NARRATIVE: CASE EVENT DATE: 20160208
